FAERS Safety Report 6485939-8 (Version None)
Quarter: 2009Q4

REPORT INFORMATION
  Report Type: 
  Country: None (occurrence: None)
  Receive Date: 20091209
  Receipt Date: 20090714
  Transmission Date: 20100525
  Serious: No
  Sender: FDA-Public Use
  Company Number: US-AMGEN-KDL355801

PATIENT
  Sex: Female

DRUGS (5)
  1. ENBREL [Suspect]
     Indication: RHEUMATOID ARTHRITIS
     Route: 058
     Dates: end: 20090619
  2. MULTI-VITAMINS [Concomitant]
  3. CALCIUM [Concomitant]
  4. ADVIL [Concomitant]
  5. TIMOPTIC [Concomitant]

REACTIONS (2)
  - HERPES ZOSTER [None]
  - NEUROMA [None]
